FAERS Safety Report 4340869-2 (Version None)
Quarter: 2004Q2

REPORT INFORMATION
  Report Type: 
  Country: None (occurrence: None)
  Receive Date: 20040414
  Receipt Date: 20040407
  Transmission Date: 20050107
  Serious: Yes (Other)
  Sender: FDA-Public Use
  Company Number: THQ2004A00310

PATIENT
  Age: 63 Year
  Sex: Female

DRUGS (5)
  1. LANSOPRAZOLE [Suspect]
     Indication: DYSPEPSIA
     Dosage: 15MG ONCE DAILY WHEN REQUIRED.
     Dates: start: 20040213, end: 20040218
  2. ATENOLOL (ATENOLOL) (UNKNOWN) [Concomitant]
  3. BENDROFLUAZIDE (BENDROFLUMETHIAZIDE) (UNKNOWN) [Concomitant]
  4. OMEGA-3 TRIGLYCERIDES (OMEGA-3 TRIGLYCERIDES) (UNKNOWN) [Concomitant]
  5. GAVISCON (GAVISCON) (UNKNOWN) [Concomitant]

REACTIONS (3)
  - LETHARGY [None]
  - NAUSEA [None]
  - VISUAL DISTURBANCE [None]
